FAERS Safety Report 5745924-8 (Version None)
Quarter: 2008Q2

REPORT INFORMATION
  Report Type: 
  Country: None (occurrence: None)
  Receive Date: 20080520
  Receipt Date: 20080513
  Transmission Date: 20081010
  Serious: Yes (Death, Hospitalization)
  Sender: FDA-Public Use
  Company Number: 163-21880-08020298

PATIENT
  Age: 83 Year
  Sex: Male

DRUGS (9)
  1. REVLIMID [Suspect]
     Indication: MULTIPLE MYELOMA
     Dosage: 10 MG, 1 IN 1 D, ORAL
     Route: 048
     Dates: start: 20061208, end: 20070706
  2. AMIODARONE (AMIODARONE) (200 MILLIGRAM) [Concomitant]
  3. LASIX (FUROSEMIDE) (40 MILLIGRAM) [Concomitant]
  4. KADIAN (MORPHINE SULFATE) (20 MILLIGRAM, TABLETS) [Concomitant]
  5. LANTUS [Concomitant]
  6. PRILOSEC (OMEPRAZOLE) (20 MILLICURIES) [Concomitant]
  7. KCL (POTASSIUM CHLORIDE) (20 MILLIEQUIVALENTS) [Concomitant]
  8. WARFARIN SODIUM [Concomitant]
  9. PHYTONADIONE [Concomitant]

REACTIONS (14)
  - BLOOD GLUCOSE INCREASED [None]
  - CARDIAC FAILURE CONGESTIVE [None]
  - DISEASE PROGRESSION [None]
  - DIZZINESS [None]
  - HAEMOGLOBIN DECREASED [None]
  - INFECTION [None]
  - INTERNATIONAL NORMALISED RATIO INCREASED [None]
  - MALAISE [None]
  - MENTAL STATUS CHANGES [None]
  - MULTIPLE MYELOMA [None]
  - PLATELET COUNT DECREASED [None]
  - PNEUMONIA [None]
  - PROTEIN TOTAL INCREASED [None]
  - RASH [None]
